FAERS Safety Report 14226626 (Version 5)
Quarter: 2018Q2

REPORT INFORMATION
  Report Type: Spontaneous
  Country: US (occurrence: US)
  Receive Date: 20171127
  Receipt Date: 20180628
  Transmission Date: 20180711
  Serious: Yes (Hospitalization, Other)
  Sender: FDA-Public Use
  Company Number: US-OTSUKA-2017_021086

PATIENT
  Age: 39 Year
  Sex: Male
  Weight: 97.05 kg

DRUGS (94)
  1. ABILIFY [Suspect]
     Active Substance: ARIPIPRAZOLE
     Dosage: 5 MG, UNK
     Route: 048
     Dates: start: 20141020, end: 20141107
  2. OMEPRAZOLE. [Concomitant]
     Active Substance: OMEPRAZOLE
     Indication: PRODUCT USED FOR UNKNOWN INDICATION
     Dosage: UNK, QD (1 CAPSULE BEFORE MEAL)
     Route: 048
     Dates: start: 20160212, end: 20170210
  3. ATIVAN [Concomitant]
     Active Substance: LORAZEPAM
     Indication: PRODUCT USED FOR UNKNOWN INDICATION
     Dosage: UNK
     Route: 065
     Dates: start: 201405, end: 201407
  4. EFFEXOR XR [Concomitant]
     Active Substance: VENLAFAXINE HYDROCHLORIDE
     Dosage: 150MG, QD (2 CAPSULES)
     Route: 048
     Dates: start: 20141020, end: 20141106
  5. EFFEXOR XR [Concomitant]
     Active Substance: VENLAFAXINE HYDROCHLORIDE
     Dosage: 150MG, QD (2 CAPSULES)
     Route: 048
     Dates: start: 20160104, end: 20160201
  6. EFFEXOR XR [Concomitant]
     Active Substance: VENLAFAXINE HYDROCHLORIDE
     Dosage: 150MG, QD (1 CAPSULES)
     Route: 048
     Dates: start: 20160718, end: 20161003
  7. EFFEXOR XR [Concomitant]
     Active Substance: VENLAFAXINE HYDROCHLORIDE
     Dosage: 225 MG, QD
     Route: 048
     Dates: start: 20160314, end: 20160314
  8. KLONOPIN [Concomitant]
     Active Substance: CLONAZEPAM
     Indication: ANXIETY
     Dosage: 0.5 MG, UNK
     Route: 048
     Dates: start: 20150105, end: 20150122
  9. ALBUTEROL. [Concomitant]
     Active Substance: ALBUTEROL
     Indication: PRODUCT USED FOR UNKNOWN INDICATION
     Dosage: UNK
     Route: 065
     Dates: start: 200803
  10. LEXAPRO [Concomitant]
     Active Substance: ESCITALOPRAM OXALATE
     Indication: PRODUCT USED FOR UNKNOWN INDICATION
     Dosage: UNK
     Route: 065
     Dates: start: 201402, end: 201405
  11. ABILIFY [Suspect]
     Active Substance: ARIPIPRAZOLE
     Dosage: UNK (STRENGTH 5MG) 1 TABLET
     Route: 048
     Dates: start: 20141201, end: 20141218
  12. CLONAZEPAM. [Concomitant]
     Active Substance: CLONAZEPAM
     Indication: PRODUCT USED FOR UNKNOWN INDICATION
     Dosage: UNK, BID (1 TABLET)
     Route: 048
     Dates: start: 20161021
  13. ATIVAN [Concomitant]
     Active Substance: LORAZEPAM
     Dosage: UNK, EVERY DAY (AS NEEDED)
     Route: 048
     Dates: start: 20140603, end: 20140714
  14. ATIVAN [Concomitant]
     Active Substance: LORAZEPAM
     Dosage: 0.5MG, BID (1 TABLET)
     Route: 048
     Dates: end: 20141002
  15. WELLBUTRIN XL [Concomitant]
     Active Substance: BUPROPION HYDROCHLORIDE
     Dosage: UNK, QD (1 TABLET)
     Route: 048
     Dates: start: 20140915
  16. KLONOPIN [Concomitant]
     Active Substance: CLONAZEPAM
     Dosage: UNK, BID (2 TABLET)
     Route: 048
     Dates: start: 20161028
  17. HALOBETASOL [Concomitant]
     Active Substance: HALOBETASOL PROPIONATE
     Indication: PRODUCT USED FOR UNKNOWN INDICATION
     Dosage: UNK
     Route: 065
     Dates: start: 201306
  18. PREVACID [Concomitant]
     Active Substance: LANSOPRAZOLE
     Indication: PRODUCT USED FOR UNKNOWN INDICATION
     Dosage: 30 MG, QD (BEFORE A MEAL)
     Route: 048
     Dates: start: 201301, end: 201406
  19. ABILIFY [Suspect]
     Active Substance: ARIPIPRAZOLE
     Dosage: 5 MG, UNK
     Route: 065
     Dates: start: 20130225, end: 20140218
  20. NALTREXONE [Concomitant]
     Active Substance: NALTREXONE
     Dosage: 1 DF, QD
     Route: 048
     Dates: start: 20150122
  21. ATIVAN [Concomitant]
     Active Substance: LORAZEPAM
     Dosage: UNK, TID (1 TABLET AS NEEDED)
     Route: 048
     Dates: start: 20141002, end: 20150101
  22. WELLBUTRIN [Concomitant]
     Active Substance: BUPROPION HYDROCHLORIDE
     Indication: PRODUCT USED FOR UNKNOWN INDICATION
     Dosage: UNK
     Route: 065
     Dates: start: 201006, end: 201105
  23. WELLBUTRIN [Concomitant]
     Active Substance: BUPROPION HYDROCHLORIDE
     Dosage: 75 MG, QD (1 TABLET)
     Route: 048
     Dates: start: 20140915, end: 20140915
  24. WELLBUTRIN XL [Concomitant]
     Active Substance: BUPROPION HYDROCHLORIDE
     Dosage: UNK, QD (1 TABLET)
     Route: 048
     Dates: start: 20140916, end: 20141002
  25. EFFEXOR [Concomitant]
     Active Substance: VENLAFAXINE HYDROCHLORIDE
     Indication: PRODUCT USED FOR UNKNOWN INDICATION
     Dosage: 150 MG, QD
     Route: 048
     Dates: start: 20141222, end: 20150122
  26. EFFEXOR [Concomitant]
     Active Substance: VENLAFAXINE HYDROCHLORIDE
     Dosage: 75MG, QD (5 CAPSULE WITH FOOD)
     Route: 048
     Dates: start: 20150618, end: 20150716
  27. EFFEXOR XR [Concomitant]
     Active Substance: VENLAFAXINE HYDROCHLORIDE
     Dosage: 150MG, QD (2 CAPSULES)
     Route: 048
     Dates: start: 20141106, end: 20141222
  28. EFFEXOR XR [Concomitant]
     Active Substance: VENLAFAXINE HYDROCHLORIDE
     Dosage: 150MG, QD (2 CAPSULES)
     Route: 048
     Dates: start: 20150122, end: 20150309
  29. EFFEXOR XR [Concomitant]
     Active Substance: VENLAFAXINE HYDROCHLORIDE
     Dosage: 150MG, QD (2 CAPSULES)
     Route: 048
     Dates: start: 20160201, end: 20160314
  30. KLONOPIN [Concomitant]
     Active Substance: CLONAZEPAM
     Dosage: UNK, BID PRN (1 TABLET)
     Route: 048
     Dates: start: 20161019
  31. KLONOPIN [Concomitant]
     Active Substance: CLONAZEPAM
     Dosage: UNK, BID PRN (1 TABLET)
     Route: 048
     Dates: start: 20161027, end: 20161128
  32. KLONOPIN [Concomitant]
     Active Substance: CLONAZEPAM
     Dosage: UNK, BID PRN (2 TABLET)
     Route: 048
     Dates: end: 10170130
  33. CIPRO [Concomitant]
     Active Substance: CIPROFLOXACIN HYDROCHLORIDE
     Indication: PRODUCT USED FOR UNKNOWN INDICATION
     Dosage: UNK
     Route: 065
     Dates: start: 200301
  34. ZOLOFT [Concomitant]
     Active Substance: SERTRALINE HYDROCHLORIDE
     Indication: PRODUCT USED FOR UNKNOWN INDICATION
     Dosage: 100 MG, QD
     Route: 048
     Dates: start: 201103, end: 201404
  35. ELAVIL [Concomitant]
     Active Substance: AMITRIPTYLINE HYDROCHLORIDE
     Indication: PRODUCT USED FOR UNKNOWN INDICATION
     Dosage: UNK
     Route: 065
     Dates: start: 201402, end: 201405
  36. VISTARIL [Concomitant]
     Active Substance: HYDROXYZINE PAMOATE
     Indication: PRODUCT USED FOR UNKNOWN INDICATION
     Dosage: UNK, QD (1 CAPSULE)
     Route: 048
     Dates: start: 20161003
  37. AUGMENTIN [Concomitant]
     Active Substance: AMOXICILLIN\CLAVULANATE POTASSIUM
     Indication: PRODUCT USED FOR UNKNOWN INDICATION
     Dosage: UNK (500-125MG, 1 TABLET EVERY 12HRS)
     Route: 048
     Dates: start: 20140930, end: 20151009
  38. PROTONIX [Concomitant]
     Active Substance: PANTOPRAZOLE SODIUM
     Dosage: UNK, QD (1 TABLET)
     Route: 048
     Dates: start: 20140714
  39. ATIVAN [Concomitant]
     Active Substance: LORAZEPAM
     Dosage: UNK
     Route: 065
     Dates: start: 201409, end: 20141106
  40. EFFEXOR [Concomitant]
     Active Substance: VENLAFAXINE HYDROCHLORIDE
     Dosage: 75MG, QD (4 CAPSULE WITH FOOD)
     Route: 048
     Dates: start: 20150309, end: 20150501
  41. EFFEXOR XR [Concomitant]
     Active Substance: VENLAFAXINE HYDROCHLORIDE
     Indication: PRODUCT USED FOR UNKNOWN INDICATION
     Dosage: UNK, QD (2 CAPSULE WITH FOOD)
     Route: 048
     Dates: start: 20141002, end: 20141020
  42. EFFEXOR XR [Concomitant]
     Active Substance: VENLAFAXINE HYDROCHLORIDE
     Indication: PRODUCT USED FOR UNKNOWN INDICATION
     Dosage: 150MG, QD (2 CAPSULES)
     Route: 048
     Dates: start: 20141222, end: 20150122
  43. AZITHROMYCIN ANHYDROUS. [Concomitant]
     Active Substance: AZITHROMYCIN ANHYDROUS
     Dosage: 250 MG, QD (2 TABLET FOR 5 DAYS)
     Route: 048
     Dates: start: 20150929, end: 20151003
  44. CEPHALEXIN. [Concomitant]
     Active Substance: CEPHALEXIN
     Indication: PRODUCT USED FOR UNKNOWN INDICATION
     Dosage: UNK
     Route: 065
     Dates: start: 201709
  45. AMOXICILLIN. [Concomitant]
     Active Substance: AMOXICILLIN
     Indication: PRODUCT USED FOR UNKNOWN INDICATION
     Dosage: UNK
     Route: 065
     Dates: start: 201509
  46. LITHIUM CARBONATE. [Concomitant]
     Active Substance: LITHIUM CARBONATE
     Indication: PRODUCT USED FOR UNKNOWN INDICATION
     Dosage: 300 MG, BID (1 TABLET)
     Route: 048
     Dates: start: 20161003, end: 20161010
  47. CLONAZEPAM. [Concomitant]
     Active Substance: CLONAZEPAM
     Dosage: UNK, BID (1 TABLET)
     Route: 048
     Dates: start: 20161003, end: 20161010
  48. WELLBUTRIN XL [Concomitant]
     Active Substance: BUPROPION HYDROCHLORIDE
     Indication: PRODUCT USED FOR UNKNOWN INDICATION
     Dosage: UNK, QD (1 TABLET)
     Route: 048
     Dates: start: 20140924
  49. EFFEXOR [Concomitant]
     Active Substance: VENLAFAXINE HYDROCHLORIDE
     Dosage: 75MG, QD (5 CAPSULE WITH FOOD)
     Route: 048
     Dates: start: 20150824, end: 20151102
  50. KLONOPIN [Concomitant]
     Active Substance: CLONAZEPAM
     Dosage: 0.5 MG, UNK
     Route: 048
     Dates: start: 20150122
  51. VALTREX [Concomitant]
     Active Substance: VALACYCLOVIR HYDROCHLORIDE
     Indication: PRODUCT USED FOR UNKNOWN INDICATION
     Dosage: UNK
     Route: 065
     Dates: start: 200303
  52. MELOXICAM. [Concomitant]
     Active Substance: MELOXICAM
     Indication: PRODUCT USED FOR UNKNOWN INDICATION
     Dosage: UNK
     Route: 065
     Dates: start: 201010
  53. ZOLOFT [Concomitant]
     Active Substance: SERTRALINE HYDROCHLORIDE
     Dosage: UNK
     Route: 065
     Dates: start: 201205, end: 201402
  54. MARIJUANA [Concomitant]
     Active Substance: CANNABIS SATIVA SUBSP. INDICA TOP
     Indication: PRODUCT USED FOR UNKNOWN INDICATION
     Dosage: UNK
     Route: 065
     Dates: start: 201405, end: 201702
  55. ZYPREXA [Concomitant]
     Active Substance: OLANZAPINE
     Dosage: UNK, QD (1.5MG TABLET)
     Route: 048
     Dates: start: 20161019
  56. ABILIFY [Suspect]
     Active Substance: ARIPIPRAZOLE
     Indication: MAJOR DEPRESSION
     Dosage: 2 MG, QD
     Route: 065
     Dates: start: 20100701, end: 201104
  57. ABILIFY [Suspect]
     Active Substance: ARIPIPRAZOLE
     Dosage: 2 MG, UNK
     Route: 065
     Dates: start: 20110720, end: 201110
  58. ABILIFY [Suspect]
     Active Substance: ARIPIPRAZOLE
     Dosage: 5 MG, UNK
     Route: 048
     Dates: start: 20141002, end: 20141020
  59. NALTREXONE [Concomitant]
     Active Substance: NALTREXONE
     Dosage: UNK
     Route: 065
     Dates: start: 201412, end: 201506
  60. PROTONIX [Concomitant]
     Active Substance: PANTOPRAZOLE SODIUM
     Dosage: UNK
     Route: 065
     Dates: start: 201406, end: 201602
  61. PROTONIX [Concomitant]
     Active Substance: PANTOPRAZOLE SODIUM
     Dosage: UNK, QD (1 TABLET)
     Route: 048
     Dates: start: 20140909, end: 20141207
  62. CLONAZEPAM. [Concomitant]
     Active Substance: CLONAZEPAM
     Dosage: UNK, BID (1 TABLET)
     Route: 048
     Dates: start: 20161010, end: 20161012
  63. ATIVAN [Concomitant]
     Active Substance: LORAZEPAM
     Indication: PRODUCT USED FOR UNKNOWN INDICATION
     Dosage: UNK, BID (1 TABLET)
     Route: 048
     Dates: start: 20140915, end: 20141101
  64. EFFEXOR [Concomitant]
     Active Substance: VENLAFAXINE HYDROCHLORIDE
     Dosage: 75MG, QD (4 CAPSULE WITH FOOD)
     Route: 048
     Dates: start: 20150507, end: 20150618
  65. EFFEXOR [Concomitant]
     Active Substance: VENLAFAXINE HYDROCHLORIDE
     Dosage: 75MG, QD (4 CAPSULE WITH FOOD)
     Route: 048
     Dates: start: 20150507, end: 20150507
  66. EFFEXOR [Concomitant]
     Active Substance: VENLAFAXINE HYDROCHLORIDE
     Dosage: 75MG, QD (4 CAPSULE WITH FOOD)
     Route: 048
     Dates: start: 20150205, end: 20150309
  67. KLONOPIN [Concomitant]
     Active Substance: CLONAZEPAM
     Dosage: UNK
     Route: 048
     Dates: start: 201510
  68. KLONOPIN [Concomitant]
     Active Substance: CLONAZEPAM
     Dosage: UNK, BID PRN (2 TABLET)
     Route: 048
     Dates: start: 10170130
  69. METHYLPREDNISOLONE. [Concomitant]
     Active Substance: METHYLPREDNISOLONE
     Dosage: UNK
     Route: 065
     Dates: start: 201306
  70. AZITHROMYCIN ANHYDROUS. [Concomitant]
     Active Substance: AZITHROMYCIN ANHYDROUS
     Indication: PRODUCT USED FOR UNKNOWN INDICATION
     Dosage: UNK
     Route: 048
     Dates: start: 200611
  71. ZYPREXA [Concomitant]
     Active Substance: OLANZAPINE
     Indication: PRODUCT USED FOR UNKNOWN INDICATION
     Dosage: 10 MG, QD
     Route: 048
     Dates: start: 20161003, end: 20161010
  72. ABILIFY [Suspect]
     Active Substance: ARIPIPRAZOLE
     Dosage: 2 MG, UNK
     Route: 065
     Dates: start: 20120525, end: 20130225
  73. ABILIFY [Suspect]
     Active Substance: ARIPIPRAZOLE
     Dosage: UNK (STRENGTH 5MG) 1 TABLET
     Route: 048
     Dates: start: 20141117, end: 20141201
  74. EFFEXOR [Concomitant]
     Active Substance: VENLAFAXINE HYDROCHLORIDE
     Dosage: 150 MG, QD
     Route: 048
     Dates: start: 20150122
  75. EFFEXOR [Concomitant]
     Active Substance: VENLAFAXINE HYDROCHLORIDE
     Dosage: 75MG, QD (5 CAPSULE WITH FOOD)
     Route: 048
     Dates: start: 20150716, end: 20150824
  76. EFFEXOR XR [Concomitant]
     Active Substance: VENLAFAXINE HYDROCHLORIDE
     Dosage: 150MG, QD (2 CAPSULES)
     Route: 048
     Dates: start: 20160314, end: 20160314
  77. EFFEXOR XR [Concomitant]
     Active Substance: VENLAFAXINE HYDROCHLORIDE
     Indication: PRODUCT USED FOR UNKNOWN INDICATION
     Dosage: 225 MG, QD
     Route: 048
     Dates: start: 20160509, end: 20160718
  78. KLONOPIN [Concomitant]
     Active Substance: CLONAZEPAM
     Dosage: UNK, BID (1 TABLET)
     Route: 048
     Dates: start: 20141106, end: 201508
  79. KLONOPIN [Concomitant]
     Active Substance: CLONAZEPAM
     Dosage: UNK, BID PRN (1 TABLET)
     Route: 048
     Dates: end: 20161105
  80. KLONOPIN [Concomitant]
     Active Substance: CLONAZEPAM
     Dosage: UNK, BID PRN (2 TABLET)
     Route: 048
     Dates: start: 20161128
  81. OLANZAPINE. [Concomitant]
     Active Substance: OLANZAPINE
     Indication: PRODUCT USED FOR UNKNOWN INDICATION
     Dosage: 15 MG, QD (1 TABLET)
     Route: 048
     Dates: start: 20161010, end: 20161010
  82. NALTREXONE [Concomitant]
     Active Substance: NALTREXONE
     Indication: PRODUCT USED FOR UNKNOWN INDICATION
     Dosage: 1 DF, QD
     Route: 048
     Dates: start: 20141201, end: 20150122
  83. PROTONIX [Concomitant]
     Active Substance: PANTOPRAZOLE SODIUM
     Indication: PRODUCT USED FOR UNKNOWN INDICATION
     Dosage: 20 MG, QD
     Route: 048
     Dates: start: 20140215, end: 20150314
  84. PROTONIX [Concomitant]
     Active Substance: PANTOPRAZOLE SODIUM
     Dosage: UNK, QD (1 TABLET)
     Route: 048
  85. PROTONIX [Concomitant]
     Active Substance: PANTOPRAZOLE SODIUM
     Dosage: UNK, QD (1 TABLET)
     Route: 048
     Dates: start: 20141215, end: 20150314
  86. WELLBUTRIN [Concomitant]
     Active Substance: BUPROPION HYDROCHLORIDE
     Dosage: UNK
     Route: 065
     Dates: start: 201408, end: 201410
  87. WELLBUTRIN [Concomitant]
     Active Substance: BUPROPION HYDROCHLORIDE
     Dosage: 75 MG, QD (1 TABLET)
     Route: 048
     Dates: start: 20140825, end: 20140915
  88. EFFEXOR [Concomitant]
     Active Substance: VENLAFAXINE HYDROCHLORIDE
     Dosage: 75MG, QD (5 CAPSULE WITH FOOD)
     Route: 048
     Dates: start: 20151102, end: 20160104
  89. KLONOPIN [Concomitant]
     Active Substance: CLONAZEPAM
     Dosage: UNK, BID PRN (1 TABLET)
     Route: 048
     Dates: start: 20161007, end: 20161105
  90. CIPRO [Concomitant]
     Active Substance: CIPROFLOXACIN HYDROCHLORIDE
     Dosage: UNK
     Route: 065
     Dates: start: 200602
  91. PROMETHAZINE - CODEINE [Concomitant]
     Active Substance: CODEINE\PROMETHAZINE
     Indication: PRODUCT USED FOR UNKNOWN INDICATION
     Dosage: UNK
     Route: 065
     Dates: start: 200301
  92. METHYLPREDNISOLONE. [Concomitant]
     Active Substance: METHYLPREDNISOLONE
     Indication: PRODUCT USED FOR UNKNOWN INDICATION
     Dosage: UNK
     Route: 065
     Dates: start: 200602
  93. CYCLOBENZAPRINE. [Concomitant]
     Active Substance: CYCLOBENZAPRINE
     Indication: PRODUCT USED FOR UNKNOWN INDICATION
     Dosage: UNK
     Route: 065
     Dates: start: 201010
  94. VIAGRA [Concomitant]
     Active Substance: SILDENAFIL CITRATE
     Indication: PRODUCT USED FOR UNKNOWN INDICATION
     Dosage: UNK
     Route: 065
     Dates: start: 201009, end: 201011

REACTIONS (29)
  - Vision blurred [Unknown]
  - Serotonin syndrome [Unknown]
  - Personality disorder [Unknown]
  - Cough [Unknown]
  - Refusal of treatment by patient [Unknown]
  - Mental disorder [Unknown]
  - Libido decreased [Unknown]
  - Depression [Unknown]
  - Dermatitis contact [Unknown]
  - Gambling disorder [Unknown]
  - Insomnia [Unknown]
  - Myalgia [Unknown]
  - Immunisation [Unknown]
  - Tearfulness [Unknown]
  - Sciatica [Recovered/Resolved]
  - Arthralgia [Unknown]
  - Diarrhoea [Recovering/Resolving]
  - Prostate cancer [Unknown]
  - Bipolar disorder [Unknown]
  - Hypogonadism [Unknown]
  - Laboratory test abnormal [Unknown]
  - Oedema [Unknown]
  - Mania [Unknown]
  - Back pain [Recovered/Resolved]
  - Dyspnoea [Unknown]
  - Pyrexia [Unknown]
  - Skin lesion [Unknown]
  - Pneumonia [Unknown]
  - Psychomotor hyperactivity [Unknown]

NARRATIVE: CASE EVENT DATE: 2014
